FAERS Safety Report 18635919 (Version 7)
Quarter: 2021Q2

REPORT INFORMATION
  Report Type: Report from Study
  Country: None (occurrence: EG)
  Receive Date: 20201218
  Receipt Date: 20210623
  Transmission Date: 20210717
  Serious: Yes (Hospitalization, Other)
  Sender: FDA-Public Use
  Company Number: EG-ABBVIE-20K-048-3699332-00

PATIENT
  Age: 63 Year
  Sex: Male
  Weight: 90 kg

DRUGS (13)
  1. IMBRUVICA [Suspect]
     Active Substance: IBRUTINIB
     Route: 048
     Dates: start: 20201107
  2. IMBRUVICA [Suspect]
     Active Substance: IBRUTINIB
     Route: 048
  3. EGYPRO [Concomitant]
     Indication: CARDIAC DISORDER
  4. CLOVIX [CLOPIDOGREL] [Concomitant]
     Indication: ANTICOAGULANT THERAPY
  5. IMBRUVICA [Suspect]
     Active Substance: IBRUTINIB
     Dosage: 3 CAPSULES OF IMBRUVICA IN THE MORNING
     Route: 048
     Dates: start: 20201205
  6. IMBRUVICA [Suspect]
     Active Substance: IBRUTINIB
     Indication: CHRONIC LYMPHOCYTIC LEUKAEMIA
     Route: 048
     Dates: start: 20200701
  7. IMBRUVICA [Suspect]
     Active Substance: IBRUTINIB
     Dosage: ONE CAPSULE IN THE MORNING AND ONE CAPSULE AT NIGHT
     Route: 048
  8. ATORSTAT [Concomitant]
     Active Substance: ATORVASTATIN CALCIUM
     Indication: CARDIAC DISORDER
  9. NITROGARD [Concomitant]
     Indication: CARDIAC DISORDER
  10. IMBRUVICA [Suspect]
     Active Substance: IBRUTINIB
     Route: 048
  11. EPREX [Concomitant]
     Active Substance: ERYTHROPOIETIN
     Indication: ANAEMIA
  12. IMBRUVICA [Suspect]
     Active Substance: IBRUTINIB
     Dosage: ONE CAPSULE IN THE MORNING AND ONE CAPSULE AT NIGHT
     Route: 048
  13. IMBRUVICA [Suspect]
     Active Substance: IBRUTINIB
     Route: 048
     Dates: start: 20201222

REACTIONS (17)
  - Chills [Recovered/Resolved]
  - Epistaxis [Recovered/Resolved]
  - Off label use [Unknown]
  - Tongue discolouration [Recovered/Resolved]
  - Product storage error [Unknown]
  - Product dose omission issue [Unknown]
  - Intervertebral disc protrusion [Recovered/Resolved]
  - Inappropriate schedule of product administration [Unknown]
  - Fall [Recovered/Resolved]
  - Fatigue [Recovered/Resolved]
  - Vomiting [Not Recovered/Not Resolved]
  - Rash [Not Recovered/Not Resolved]
  - Decreased appetite [Recovered/Resolved]
  - Abscess oral [Recovered/Resolved]
  - Furuncle [Recovered/Resolved]
  - Mouth haemorrhage [Recovered/Resolved]
  - Abdominal pain upper [Not Recovered/Not Resolved]

NARRATIVE: CASE EVENT DATE: 202007
